FAERS Safety Report 9442719 (Version 1)
Quarter: 2013Q3

REPORT INFORMATION
  Report Type: Spontaneous
  Country: US (occurrence: US)
  Receive Date: 20130806
  Receipt Date: 20130806
  Transmission Date: 20140515
  Serious: Yes (Hospitalization)
  Sender: FDA-Public Use
  Company Number: PHHY2013US082007

PATIENT
  Age: 47 Year
  Sex: Male

DRUGS (2)
  1. DEXAMETHASONE [Suspect]
     Dosage: 4-6 MG EVERY 6 HRS
  2. INSULIN [Concomitant]
     Indication: BLOOD GLUCOSE
     Route: 042

REACTIONS (6)
  - Hypernatraemia [Unknown]
  - Polyuria [Unknown]
  - Urine output increased [Unknown]
  - Urea urine increased [Unknown]
  - Urine osmolarity increased [Unknown]
  - Catabolic state [Unknown]
